FAERS Safety Report 17519875 (Version 1)
Quarter: 2020Q1

REPORT INFORMATION
  Report Type: Spontaneous
  Country: US (occurrence: US)
  Receive Date: 20200309
  Receipt Date: 20200309
  Transmission Date: 20200409
  Serious: No
  Sender: FDA-Public Use
  Company Number: None

PATIENT
  Age: 17 Year
  Sex: Female
  Weight: 45 kg

DRUGS (1)
  1. ESCITALOPRAM [Suspect]
     Active Substance: ESCITALOPRAM OXALATE
     Indication: PRODUCT USED FOR UNKNOWN INDICATION
     Route: 048
     Dates: start: 20200110, end: 20200306

REACTIONS (6)
  - Diarrhoea [None]
  - Panic attack [None]
  - Product substitution issue [None]
  - Anger [None]
  - Night sweats [None]
  - Mood altered [None]

NARRATIVE: CASE EVENT DATE: 20200306
